FAERS Safety Report 21207240 (Version 1)
Quarter: 2022Q3

REPORT INFORMATION
  Report Type: Spontaneous
  Country: US (occurrence: None)
  Receive Date: 20220811
  Receipt Date: 20220811
  Transmission Date: 20221026
  Serious: No
  Sender: FDA-Public Use
  Company Number: None

PATIENT
  Age: 44 Year
  Sex: Male

DRUGS (2)
  1. TASIGNA [Suspect]
     Active Substance: NILOTINIB
     Dosage: FREQUENCY : TWICE A DAY;?
     Route: 048
     Dates: start: 202203, end: 20220608
  2. WARFARIN [Suspect]
     Active Substance: WARFARIN

REACTIONS (2)
  - Eye haemorrhage [None]
  - Thrombosis [None]

NARRATIVE: CASE EVENT DATE: 20220608
